FAERS Safety Report 9384159 (Version 1)
Quarter: 2013Q3

REPORT INFORMATION
  Report Type: Spontaneous
  Country: US (occurrence: None)
  Receive Date: 20130702
  Receipt Date: 20130702
  Transmission Date: 20140515
  Serious: Yes (Disabling)
  Sender: FDA-Public Use
  Company Number: None

PATIENT
  Age: 81 Year
  Sex: Female
  Weight: 61.69 kg

DRUGS (4)
  1. ARMOUR THYROID [Suspect]
     Route: 048
     Dates: start: 20120618, end: 201210
  2. SPIROLACTONE [Concomitant]
  3. CLONIDINE [Concomitant]
  4. LOSARTAN [Concomitant]

REACTIONS (1)
  - Tremor [None]
